FAERS Safety Report 5305017-0 (Version None)
Quarter: 2007Q2

REPORT INFORMATION
  Report Type: 
  Country: None (occurrence: None)
  Receive Date: 20070423
  Receipt Date: 20070411
  Transmission Date: 20071010
  Serious: Yes (Disabling)
  Sender: FDA-Public Use
  Company Number: DE-PFIZER INC-2007017802

PATIENT
  Age: 66 Year
  Sex: Female

DRUGS (4)
  1. ATORVASTATIN CALCIUM [Suspect]
     Indication: HYPERTENSION
     Dosage: DAILY DOSE:10MG-FREQ:DAILY
     Route: 048
  2. ATORVASTATIN CALCIUM [Suspect]
     Indication: HYPERCHOLESTEROLAEMIA
  3. ATACAND [Concomitant]
     Route: 048
  4. DURASOPTIN [Concomitant]
     Route: 048

REACTIONS (3)
  - MUSCULOSKELETAL PAIN [None]
  - NEURITIS [None]
  - UPPER RESPIRATORY TRACT INFECTION [None]
